FAERS Safety Report 8848526 (Version 1)
Quarter: 2012Q4

REPORT INFORMATION
  Report Type: Report from Study
  Country: CA (occurrence: CA)
  Receive Date: 20121018
  Receipt Date: 20121018
  Transmission Date: 20130627
  Serious: Yes (Hospitalization, Other)
  Sender: FDA-Public Use
  Company Number: CA-JNJFOC-20121005923

PATIENT
  Age: 42 Year
  Sex: Female
  Weight: 99.79 kg

DRUGS (2)
  1. REMICADE [Suspect]
     Indication: COLITIS ULCERATIVE
     Route: 042
     Dates: start: 201202
  2. REMICADE [Suspect]
     Indication: COLITIS ULCERATIVE
     Route: 042
     Dates: start: 20120403, end: 20120718

REACTIONS (5)
  - Colectomy [Unknown]
  - Postoperative wound infection [Unknown]
  - Cystic fibrosis [Unknown]
  - Urinary tract infection [Unknown]
  - Ileostomy [Unknown]
